FAERS Safety Report 9698160 (Version 2)
Quarter: 2014Q1

REPORT INFORMATION
  Report Type: Spontaneous
  Country: PT (occurrence: PT)
  Receive Date: 20131120
  Receipt Date: 20140327
  Transmission Date: 20141002
  Serious: Yes (Other)
  Sender: FDA-Public Use
  Company Number: PT-ROCHE-1306343

PATIENT
  Age: 76 Year
  Sex: Female

DRUGS (1)
  1. ALTEPLASE [Suspect]
     Indication: CEREBROVASCULAR ACCIDENT
     Route: 042

REACTIONS (5)
  - Splenic rupture [Unknown]
  - Hypovolaemic shock [Unknown]
  - Hypotension [Unknown]
  - Intra-abdominal haemorrhage [Unknown]
  - Neurological decompensation [Not Recovered/Not Resolved]
